FAERS Safety Report 10562463 (Version 1)
Quarter: 2014Q4

REPORT INFORMATION
  Report Type: Spontaneous
  Country: US (occurrence: None)
  Receive Date: 20141103
  Receipt Date: 20141103
  Transmission Date: 20150529
  Serious: Yes (Hospitalization)
  Sender: FDA-Public Use
  Company Number: None

PATIENT
  Age: 9 Month
  Sex: Male
  Weight: 9.07 kg

DRUGS (3)
  1. HYLAND^S 4 KIDS COLD N COUGH AGES 2-12 [Suspect]
     Active Substance: HOMEOPATHICS
     Indication: COUGH
     Dates: start: 20141029, end: 20141031
  2. HYLAND^S 4 KIDS COLD N COUGH AGES 2-12 [Suspect]
     Active Substance: HOMEOPATHICS
     Indication: RHINORRHOEA
     Dates: start: 20141029, end: 20141031
  3. HYLAND^S 4 KIDS COLD N COUGH AGES 2-12 [Suspect]
     Active Substance: HOMEOPATHICS
     Indication: NASOPHARYNGITIS
     Dates: start: 20141029, end: 20141031

REACTIONS (3)
  - Lethargy [None]
  - Dyspnoea [None]
  - Aphonia [None]

NARRATIVE: CASE EVENT DATE: 20141030
